FAERS Safety Report 5132397-1 (Version None)
Quarter: 2006Q4

REPORT INFORMATION
  Report Type: 
  Country: None (occurrence: None)
  Receive Date: 20061017
  Receipt Date: 20061002
  Transmission Date: 20070319
  Serious: Yes (Death)
  Sender: FDA-Public Use
  Company Number: JP200609004993

PATIENT
  Age: 64 Year
  Sex: Female
  Weight: 63.5 kg

DRUGS (7)
  1. GEMZAR [Suspect]
     Indication: NON-SMALL CELL LUNG CANCER RECURRENT
     Dosage: SEE IMAGE
     Route: 042
     Dates: start: 20060614, end: 20060621
  2. GEMZAR [Suspect]
     Indication: NON-SMALL CELL LUNG CANCER RECURRENT
     Dosage: SEE IMAGE
     Route: 042
     Dates: start: 20060714, end: 20060721
  3. NAVELBINE [Concomitant]
  4. ALLOPURINOL [Concomitant]
  5. ASPIRIN [Concomitant]
  6. ENALAPRIL MALEATE [Concomitant]
  7. PREDNISOLONE [Concomitant]

REACTIONS (16)
  - ACTIVATED PARTIAL THROMBOPLASTIN TIME PROLONGED [None]
  - ARTERIAL OCCLUSIVE DISEASE [None]
  - BLOOD PH DECREASED [None]
  - BLOOD PRESSURE DECREASED [None]
  - DILATATION VENTRICULAR [None]
  - DIZZINESS POSTURAL [None]
  - FIBRIN D DIMER INCREASED [None]
  - HAEMORRHAGE [None]
  - INTERNATIONAL NORMALISED RATIO INCREASED [None]
  - MALAISE [None]
  - PROTHROMBIN TIME PROLONGED [None]
  - PULMONARY INFARCTION [None]
  - PULMONARY VASCULAR DISORDER [None]
  - THERAPY NON-RESPONDER [None]
  - VENOUS OCCLUSION [None]
  - WHITE BLOOD CELL COUNT INCREASED [None]
